FAERS Safety Report 21093749 (Version 1)
Quarter: 2022Q3

REPORT INFORMATION
  Report Type: Spontaneous
  Country: FR (occurrence: FR)
  Receive Date: 20220718
  Receipt Date: 20220718
  Transmission Date: 20221026
  Serious: Yes (Other)
  Sender: FDA-Public Use
  Company Number: None

PATIENT
  Age: 75 Year
  Sex: Male

DRUGS (2)
  1. AMOXICILLIN [Suspect]
     Active Substance: AMOXICILLIN
     Indication: Arthritis
     Dosage: 3 G, QD
     Route: 048
     Dates: start: 20220603, end: 20220604
  2. AMOXICILLIN [Suspect]
     Active Substance: AMOXICILLIN
     Dosage: 12 G, QD
     Route: 048
     Dates: start: 20220605

REACTIONS (1)
  - Acute kidney injury [Recovering/Resolving]

NARRATIVE: CASE EVENT DATE: 20220607
